FAERS Safety Report 13006487 (Version 1)
Quarter: 2016Q4

REPORT INFORMATION
  Report Type: Spontaneous
  Country: US (occurrence: US)
  Receive Date: 20161207
  Receipt Date: 20161207
  Transmission Date: 20170207
  Serious: Yes (Life-Threatening, Disabling, Other)
  Sender: FDA-Public Use
  Company Number: None

PATIENT
  Age: 34 Year
  Sex: Male
  Weight: 77 kg

DRUGS (1)
  1. ELIQUIS [Suspect]
     Active Substance: APIXABAN

REACTIONS (6)
  - Emotional distress [None]
  - Headache [None]
  - Dyspepsia [None]
  - Eating disorder [None]
  - Insomnia [None]
  - Nervousness [None]

NARRATIVE: CASE EVENT DATE: 20161206
